FAERS Safety Report 20655596 (Version 1)
Quarter: 2022Q1

REPORT INFORMATION
  Report Type: Spontaneous
  Country: US (occurrence: US)
  Receive Date: 20220330
  Receipt Date: 20220330
  Transmission Date: 20220423
  Serious: No
  Sender: FDA-Public Use
  Company Number: US-ALLERGAN-2206582US

PATIENT

DRUGS (2)
  1. UBRELVY [Suspect]
     Active Substance: UBROGEPANT
     Indication: Migraine
     Dosage: 50 MG
  2. UBRELVY [Suspect]
     Active Substance: UBROGEPANT
     Dosage: 100 UNK

REACTIONS (3)
  - Vertigo [Unknown]
  - Fatigue [Unknown]
  - Dizziness [Unknown]
